FAERS Safety Report 8385338 (Version 3)
Quarter: 2015Q1

REPORT INFORMATION
  Report Type: Report from Study
  Country: US (occurrence: US)
  Receive Date: 20120202
  Receipt Date: 20150304
  Transmission Date: 20150721
  Serious: Yes (Death)
  Sender: FDA-Public Use
  Company Number: US-ROCHE-1035702

PATIENT
  Sex: Female

DRUGS (17)
  1. XELODA [Suspect]
     Active Substance: CAPECITABINE
     Indication: PRODUCT USED FOR UNKNOWN INDICATION
     Route: 048
  2. FASLODEX [Concomitant]
     Active Substance: FULVESTRANT
     Route: 048
  3. COMPAZINE [Concomitant]
     Active Substance: PROCHLORPERAZINE MALEATE
     Indication: NAUSEA
     Dosage: AS NEEDED
     Route: 048
  4. VITAMIN C [Concomitant]
     Active Substance: ASCORBIC ACID
  5. PRILOSEC [Concomitant]
     Active Substance: OMEPRAZOLE MAGNESIUM
     Dosage: EVERY DAY
     Route: 065
  6. SYNTHROID [Concomitant]
     Active Substance: LEVOTHYROXINE SODIUM
     Route: 065
  7. AVASTIN [Suspect]
     Active Substance: BEVACIZUMAB
     Indication: METASTASES TO LIVER
     Route: 065
     Dates: start: 200702
  8. ULTRAM [Concomitant]
     Active Substance: TRAMADOL HYDROCHLORIDE
     Route: 065
  9. VITAMIN K [Concomitant]
     Active Substance: PHYTONADIONE
  10. COUMADIN [Concomitant]
     Active Substance: WARFARIN SODIUM
     Route: 048
  11. ABRAXANE [Concomitant]
     Active Substance: PACLITAXEL
     Route: 065
  12. DIOVAN [Concomitant]
     Active Substance: VALSARTAN
     Dosage: EVERY DAY
     Route: 065
  13. FASLODEX [Concomitant]
     Active Substance: FULVESTRANT
     Route: 048
  14. FLEXERIL [Concomitant]
     Active Substance: CYCLOBENZAPRINE HYDROCHLORIDE
  15. ZOMETA [Concomitant]
     Active Substance: ZOLEDRONIC ACID
     Route: 065
  16. ATIVAN [Concomitant]
     Active Substance: LORAZEPAM
     Dosage: AS NEEDED
     Route: 065
  17. BACTRIM [Concomitant]
     Active Substance: SULFAMETHOXAZOLE\TRIMETHOPRIM
     Route: 065

REACTIONS (14)
  - Muscular weakness [Unknown]
  - Death [Fatal]
  - Back pain [Unknown]
  - Nausea [Unknown]
  - Malaise [Unknown]
  - Paraesthesia [Unknown]
  - Conjunctival pallor [Unknown]
  - Disease progression [Unknown]
  - Metastases to bone [Unknown]
  - Alopecia [Unknown]
  - Pain in extremity [Unknown]
  - Rash [Unknown]
  - Spinal compression fracture [Unknown]
  - Off label use [Unknown]
